FAERS Safety Report 25157302 (Version 2)
Quarter: 2025Q2

REPORT INFORMATION
  Report Type: Spontaneous
  Country: US (occurrence: US)
  Receive Date: 20250403
  Receipt Date: 20250408
  Transmission Date: 20250716
  Serious: No
  Sender: VERONA PHARMA
  Company Number: US-VERONA PHARMA-VER-002218

PATIENT
  Sex: Male

DRUGS (2)
  1. OHTUVAYRE [Suspect]
     Active Substance: ENSIFENTRINE
     Indication: Emphysema
     Dosage: 3 MILLIGRAM, BID
     Dates: start: 20250120
  2. OHTUVAYRE [Suspect]
     Active Substance: ENSIFENTRINE
     Indication: Chronic obstructive pulmonary disease

REACTIONS (1)
  - Lymphadenopathy [Unknown]

NARRATIVE: CASE EVENT DATE: 20250124
